FAERS Safety Report 25996738 (Version 2)
Quarter: 2025Q4

REPORT INFORMATION
  Report Type: Spontaneous
  Country: AU (occurrence: AU)
  Receive Date: 20251104
  Receipt Date: 20251104
  Transmission Date: 20260117
  Serious: Yes (Life-Threatening, Other)
  Sender: SANDOZ
  Company Number: AU-SANDOZ-SDZ2025AU081861

PATIENT
  Sex: Female

DRUGS (1)
  1. ADALIMUMAB [Suspect]
     Active Substance: ADALIMUMAB
     Indication: Psoriatic arthropathy
     Dosage: 40 MG, QW
     Route: 065

REACTIONS (2)
  - Psoriatic arthropathy [Unknown]
  - Off label use [Unknown]
